FAERS Safety Report 17755600 (Version 1)
Quarter: 2020Q2

REPORT INFORMATION
  Report Type: Spontaneous
  Country: US (occurrence: US)
  Receive Date: 20200506
  Receipt Date: 20200506
  Transmission Date: 20200714
  Serious: Yes (Other)
  Sender: FDA-Public Use
  Company Number: None

PATIENT
  Age: 45 Year
  Sex: Female
  Weight: 180 kg

DRUGS (1)
  1. MEGESTROL [Suspect]
     Active Substance: MEGESTROL
     Indication: NEOPLASM MALIGNANT
     Route: 048
     Dates: start: 20200417, end: 20200417

REACTIONS (3)
  - Dyspnoea [None]
  - Chest discomfort [None]
  - Pharyngeal swelling [None]

NARRATIVE: CASE EVENT DATE: 20200417
